FAERS Safety Report 5123889-X (Version None)
Quarter: 2006Q4

REPORT INFORMATION
  Report Type: 
  Country: None (occurrence: None)
  Receive Date: 20061010
  Receipt Date: 20060929
  Transmission Date: 20070319
  Serious: Yes (Hospitalization, Other)
  Sender: FDA-Public Use
  Company Number: CH-JNJFOC-20061000112

PATIENT
  Age: 85 Year
  Sex: Male

DRUGS (11)
  1. IMODIUM [Suspect]
     Indication: DIARRHOEA
     Route: 065
  2. RISPERDAL [Suspect]
     Indication: DRUG USE FOR UNKNOWN INDICATION
     Route: 048
  3. ARICEPT [Suspect]
     Indication: AMNESIA
     Route: 048
  4. LISINOPRIL [Suspect]
     Indication: ESSENTIAL HYPERTENSION
     Route: 048
  5. FENOFIBRATE [Suspect]
     Indication: HYPERLIPIDAEMIA
     Route: 048
  6. BERODUAL [Suspect]
     Indication: CHRONIC OBSTRUCTIVE PULMONARY DISEASE
     Route: 065
  7. ALDACTONE [Concomitant]
     Indication: ESSENTIAL HYPERTENSION
     Route: 048
  8. ALLOPUR [Concomitant]
     Indication: GOUT
     Route: 065
  9. FOLVITE [Concomitant]
     Route: 048
  10. DISTRANEURIN [Concomitant]
     Indication: INSOMNIA
     Route: 048
  11. SERETIDE [Concomitant]
     Indication: CHRONIC OBSTRUCTIVE PULMONARY DISEASE
     Route: 065

REACTIONS (5)
  - CONFUSIONAL STATE [None]
  - EXTRAPYRAMIDAL DISORDER [None]
  - RENAL FAILURE [None]
  - RHABDOMYOLYSIS [None]
  - SOMNOLENCE [None]
